FAERS Safety Report 8781447 (Version 1)
Quarter: 2012Q4

REPORT INFORMATION
  Report Type: 
  Country: US (occurrence: US)
  Receive Date: 20120913
  Receipt Date: 20120913
  Transmission Date: 20130627
  Serious: No
  Sender: FDA-Public Use
  Company Number: US-009507513-2010SP019904

PATIENT

DRUGS (4)
  1. REBETOL [Suspect]
     Indication: HEPATITIS C
     Dosage: 1000 mg, Unknown
     Route: 065
  2. PEG-INTRON [Suspect]
     Indication: HEPATITIS C
     Dosage: UNK
  3. MINERALS (UNSPECIFIED) (+) VITAMINS (UNSPECIFIED) [Concomitant]
     Indication: PREGNANCY
     Dosage: 1, UPDATE(22JUN2011)
     Route: 065
  4. ZOLOFT [Concomitant]
     Indication: ANXIETY
     Dosage: UPDATE(22JUN2011)
     Route: 065

REACTIONS (2)
  - Exposure via father [Recovered/Resolved]
  - No adverse event [Unknown]
